FAERS Safety Report 7732844-2 (Version None)
Quarter: 2011Q3

REPORT INFORMATION
  Report Type: 
  Country: None (occurrence: None)
  Receive Date: 20110902
  Receipt Date: 20110902
  Transmission Date: 20111222
  Serious: Yes (Disabling)
  Sender: FDA-Public Use
  Company Number: None

PATIENT
  Age: 75 Year
  Sex: Male
  Weight: 81.8 kg

DRUGS (1)
  1. VYTORIN [Suspect]
     Dosage: 10/20 MG ONCE DAILY ORAL / 047
     Route: 048
     Dates: start: 20070401, end: 20110301

REACTIONS (2)
  - TENDON RUPTURE [None]
  - TENDONITIS [None]
